FAERS Safety Report 20818394 (Version 3)
Quarter: 2022Q2

REPORT INFORMATION
  Report Type: Spontaneous
  Country: NL (occurrence: NL)
  Receive Date: 20220512
  Receipt Date: 20220525
  Transmission Date: 20220721
  Serious: No
  Sender: FDA-Public Use
  Company Number: NL-FRESENIUS KABI-FK202205223

PATIENT
  Age: 38 Year
  Sex: Female

DRUGS (6)
  1. PREDNISOLONE [Suspect]
     Active Substance: PREDNISOLONE
     Indication: Glomerulonephritis membranous
     Route: 065
     Dates: start: 201606
  2. RITUXIMAB [Suspect]
     Active Substance: RITUXIMAB
     Indication: Glomerulonephritis membranous
     Dosage: IV 2X1G
     Route: 042
     Dates: start: 201712
  3. RITUXIMAB [Suspect]
     Active Substance: RITUXIMAB
     Dosage: IV 1G
     Route: 042
     Dates: start: 20190318
  4. RITUXIMAB [Suspect]
     Active Substance: RITUXIMAB
     Dosage: IV 1G
     Route: 042
     Dates: start: 20190403
  5. RITUXIMAB [Suspect]
     Active Substance: RITUXIMAB
     Dosage: 2X1G
     Route: 065
     Dates: start: 20210212
  6. MYCOPHENOLATE MOFETIL [Suspect]
     Active Substance: MYCOPHENOLATE MOFETIL
     Indication: Glomerulonephritis membranous
     Route: 065
     Dates: start: 201606

REACTIONS (1)
  - Therapy non-responder [Unknown]
